FAERS Safety Report 7095593-2 (Version None)
Quarter: 2010Q4

REPORT INFORMATION
  Report Type: 
  Country: None (occurrence: None)
  Receive Date: 20101111
  Receipt Date: 20101103
  Transmission Date: 20110411
  Serious: Yes (Hospitalization, Other)
  Sender: FDA-Public Use
  Company Number: BR-PFIZER INC-2010140004

PATIENT
  Age: 56 Year
  Sex: Male
  Weight: 75 kg

DRUGS (3)
  1. LIPITOR [Suspect]
     Indication: BLOOD CHOLESTEROL
     Dosage: UNK
     Route: 048
  2. DIOVAN [Concomitant]
     Dosage: UNK
  3. CIPROFIBRATE [Concomitant]
     Dosage: UNK

REACTIONS (4)
  - COORDINATION ABNORMAL [None]
  - HAND DEFORMITY [None]
  - HYPOAESTHESIA [None]
  - LIMB DISCOMFORT [None]
